FAERS Safety Report 7363767-9 (Version None)
Quarter: 2011Q1

REPORT INFORMATION
  Report Type: 
  Country: None (occurrence: None)
  Receive Date: 20110321
  Receipt Date: 20110315
  Transmission Date: 20110831
  Serious: Yes (Other)
  Sender: FDA-Public Use
  Company Number: ES-US-EMD SERONO, INC.-7047923

PATIENT
  Age: 34 Year
  Sex: Female
  Weight: 56 kg

DRUGS (1)
  1. REBIF [Suspect]
     Indication: MULTIPLE SCLEROSIS
     Route: 058
     Dates: start: 20100728

REACTIONS (5)
  - DEPRESSION [None]
  - INJECTION SITE SWELLING [None]
  - SUICIDAL IDEATION [None]
  - SENSORY LOSS [None]
  - INFLUENZA LIKE ILLNESS [None]
